FAERS Safety Report 4958083-6 (Version None)
Quarter: 2006Q1

REPORT INFORMATION
  Report Type: 
  Country: None (occurrence: None)
  Receive Date: 20060324
  Receipt Date: 20060317
  Transmission Date: 20060701
  Serious: Yes (Life-Threatening)
  Sender: FDA-Public Use
  Company Number: SU-2006-004706

PATIENT
  Age: 92 Year
  Sex: Female
  Weight: 63 kg

DRUGS (5)
  1. OLMETEC [Suspect]
     Indication: HYPERTENSION
     Dosage: 20 MG PO
     Route: 048
     Dates: start: 20050812
  2. NORVASC [Suspect]
     Indication: HYPERTENSION
     Dosage: 5 MG PO
     Route: 048
     Dates: start: 20010305, end: 20051213
  3. CLARITIN [Suspect]
     Indication: PRURITUS
     Dosage: 10 MG PO
     Route: 048
     Dates: start: 20051115, end: 20051213
  4. CLARITIN [Suspect]
     Indication: RASH
     Dosage: 10 MG PO
     Route: 048
     Dates: start: 20051115, end: 20051213
  5. ALLOPURINOL [Suspect]
     Indication: HYPERURICAEMIA
     Dosage: 200 MG PO
     Route: 048
     Dates: start: 20051019, end: 20051213

REACTIONS (7)
  - ECZEMA [None]
  - GASTROINTESTINAL HAEMORRHAGE [None]
  - PLATELET COUNT DECREASED [None]
  - PNEUMONIA [None]
  - PRURITUS [None]
  - PURPURA [None]
  - REFUSAL OF TREATMENT BY PATIENT [None]
